FAERS Safety Report 8464048-2 (Version None)
Quarter: 2012Q2

REPORT INFORMATION
  Report Type: 
  Country: None (occurrence: None)
  Receive Date: 20120323
  Receipt Date: 20111007
  Transmission Date: 20120825
  Serious: Yes (Other)
  Sender: FDA-Public Use
  Company Number: 163-21880-11101058

PATIENT
  Age: 62 Year
  Sex: Female

DRUGS (9)
  1. LENALIDOMIDE [Suspect]
     Indication: MULTIPLE MYELOMA
     Dosage: 25 MG, DAILY FOR 14 DAYS EVERY 21 DAYS, PO
     Route: 048
     Dates: start: 20110921
  2. COMPAZINE (PROCHLORPERAZINE EDISYLATE)(UNKNOWN) [Concomitant]
  3. VELCADE [Concomitant]
  4. DECADRON [Concomitant]
  5. ESTRACE [Concomitant]
  6. MAXZIDE (DYAZIDE)(UNKNOWN) [Concomitant]
  7. ATIVAN [Concomitant]
  8. TENORMIN [Concomitant]
  9. PRILOSEC [Suspect]

REACTIONS (3)
  - FATIGUE [None]
  - RASH [None]
  - HAEMOGLOBIN DECREASED [None]
